FAERS Safety Report 19965618 (Version 4)
Quarter: 2021Q4

REPORT INFORMATION
  Report Type: Report from Study
  Country: US (occurrence: US)
  Receive Date: 20211018
  Receipt Date: 20211103
  Transmission Date: 20220304
  Serious: Yes (Death, Life-Threatening, Hospitalization, Other)
  Sender: FDA-Public Use
  Company Number: US-ABBVIE-21K-163-4118891-00

PATIENT
  Sex: Male

DRUGS (10)
  1. DUOPA [Suspect]
     Active Substance: CARBIDOPA\LEVODOPA
     Indication: Parkinson^s disease
     Route: 050
     Dates: start: 201503, end: 2021
  2. DUOPA [Suspect]
     Active Substance: CARBIDOPA\LEVODOPA
  3. AMANTADINE [Concomitant]
     Active Substance: AMANTADINE
     Indication: Product used for unknown indication
  4. CYMBALTA [Concomitant]
     Active Substance: DULOXETINE HYDROCHLORIDE
     Indication: Product used for unknown indication
  5. DONEPEZIL [Concomitant]
     Active Substance: DONEPEZIL
     Indication: Product used for unknown indication
  6. FLUDROCORTISONE [Concomitant]
     Active Substance: FLUDROCORTISONE
     Indication: Product used for unknown indication
  7. GABAPENTIN [Concomitant]
     Active Substance: GABAPENTIN
     Indication: Product used for unknown indication
  8. ZOLOFT [Concomitant]
     Active Substance: SERTRALINE HYDROCHLORIDE
     Indication: Product used for unknown indication
  9. MYRBETRIQ [Concomitant]
     Active Substance: MIRABEGRON
     Indication: Product used for unknown indication
  10. ARICEPT [Concomitant]
     Active Substance: DONEPEZIL HYDROCHLORIDE
     Indication: Product used for unknown indication

REACTIONS (41)
  - Death [Fatal]
  - Cardiac arrest [Recovered/Resolved]
  - Pneumothorax [Unknown]
  - Mental impairment [Unknown]
  - COVID-19 [Unknown]
  - Myocardial injury [Unknown]
  - Multiple fractures [Unknown]
  - Emotional distress [Unknown]
  - Daydreaming [Unknown]
  - Wrong technique in product usage process [Unknown]
  - Off label use [Unknown]
  - Speech disorder [Unknown]
  - Dysstasia [Unknown]
  - Post-traumatic stress disorder [Unknown]
  - Loss of personal independence in daily activities [Unknown]
  - Behaviour disorder [Unknown]
  - Contusion [Not Recovered/Not Resolved]
  - Complication associated with device [Unknown]
  - Mental disorder [Unknown]
  - Aphasia [Not Recovered/Not Resolved]
  - Somnambulism [Unknown]
  - Discomfort [Unknown]
  - Asthenia [Unknown]
  - Nightmare [Unknown]
  - Malaise [Unknown]
  - Fall [Unknown]
  - Fall [Recovered/Resolved]
  - Stoma site discharge [Unknown]
  - Disorientation [Unknown]
  - Stoma site discharge [Unknown]
  - Stoma site hypergranulation [Not Recovered/Not Resolved]
  - Stoma site erythema [Not Recovered/Not Resolved]
  - Stoma site haemorrhage [Unknown]
  - Parkinson^s disease [Unknown]
  - Dementia [Not Recovered/Not Resolved]
  - Freezing phenomenon [Not Recovered/Not Resolved]
  - Stoma complication [Unknown]
  - Unevaluable event [Unknown]
  - Device dislocation [Unknown]
  - Device kink [Unknown]
  - Device occlusion [Unknown]

NARRATIVE: CASE EVENT DATE: 20150101
